FAERS Safety Report 10081630 (Version 1)
Quarter: 2014Q2

REPORT INFORMATION
  Report Type: Spontaneous
  Country: GB (occurrence: GB)
  Receive Date: 20140416
  Receipt Date: 20140416
  Transmission Date: 20141212
  Serious: Yes (Hospitalization)
  Sender: FDA-Public Use
  Company Number: GB-B.I. PHARMACEUTICALS,INC./RIDGEFIELD-2014-BI-15736UK

PATIENT
  Age: 91 Year
  Sex: Male

DRUGS (12)
  1. FERROUS FUMARATE [Concomitant]
     Dosage: 210 MG
     Route: 048
  2. FUROSEMIDE [Concomitant]
     Indication: MYOCARDIAL ISCHAEMIA
     Dosage: 40 MG
     Route: 048
  3. ISOSORBIDE MONONITRATE [Concomitant]
     Indication: MYOCARDIAL ISCHAEMIA
     Dosage: 120 MG
     Route: 048
  4. LANSOPRAZOLE [Concomitant]
     Dosage: 15 MG
     Route: 048
  5. NICORANDIL [Concomitant]
     Dosage: 40 MG
     Route: 048
  6. PARACETAMOL [Concomitant]
     Dosage: 4 G
     Route: 048
  7. RAMIPRIL [Concomitant]
     Dosage: 5 MG
     Route: 048
  8. ROSUVASTATIN [Concomitant]
     Indication: MYOCARDIAL ISCHAEMIA
     Dosage: 10 MG
     Route: 048
  9. TAMSULOSIN [Concomitant]
     Dosage: 400 MG
     Route: 048
  10. PRADAXA [Suspect]
     Indication: ATRIAL FIBRILLATION
     Dosage: 220 MG
     Route: 048
     Dates: end: 20140313
  11. ASPIRIN [Concomitant]
     Indication: MYOCARDIAL ISCHAEMIA
     Dosage: 75 MG
     Route: 048
  12. BISOPROLOL [Concomitant]
     Dosage: 5 MG
     Route: 048

REACTIONS (3)
  - Haematuria [Recovered/Resolved]
  - International normalised ratio increased [Recovered/Resolved]
  - Contraindication to medical treatment [Unknown]
